FAERS Safety Report 7207031-7 (Version None)
Quarter: 2011Q1

REPORT INFORMATION
  Report Type: 
  Country: None (occurrence: None)
  Receive Date: 20110103
  Receipt Date: 20101220
  Transmission Date: 20110831
  Serious: Yes (Death, Hospitalization)
  Sender: FDA-Public Use
  Company Number: B0687129A

PATIENT
  Sex: Female

DRUGS (2)
  1. CAELYX [Suspect]
     Indication: BREAST NEOPLASM
     Route: 042
     Dates: start: 20100929, end: 20101028
  2. LAPATINIB [Suspect]
     Indication: BREAST NEOPLASM
     Dosage: 1500MG PER DAY
     Route: 048
     Dates: start: 20100929

REACTIONS (1)
  - GENERAL PHYSICAL HEALTH DETERIORATION [None]
